FAERS Safety Report 14249218 (Version 2)
Quarter: 2018Q4

REPORT INFORMATION
  Report Type: Spontaneous
  Country: IN (occurrence: IN)
  Receive Date: 20171204
  Receipt Date: 20181009
  Transmission Date: 20190204
  Serious: Yes (Death, Life-Threatening, Hospitalization, Other)
  Sender: FDA-Public Use
  Company Number: PHHY2017IN176998

PATIENT
  Age: 15 Year
  Sex: Female

DRUGS (2)
  1. METHYLPREDNISOLONE. [Suspect]
     Active Substance: METHYLPREDNISOLONE
     Dosage: 40 MG, UNK
     Route: 048
  2. METHYLPREDNISOLONE. [Suspect]
     Active Substance: METHYLPREDNISOLONE
     Indication: ACUTE DISSEMINATED ENCEPHALOMYELITIS
     Dosage: 500 MG, UNK (PULSE THERAPY)
     Route: 042

REACTIONS (14)
  - Confusional state [Fatal]
  - Bradycardia [Fatal]
  - General physical health deterioration [Fatal]
  - Coma [Fatal]
  - Drug ineffective [Unknown]
  - Demyelination [Fatal]
  - Product use in unapproved indication [Unknown]
  - Oedema [Fatal]
  - Central nervous system lesion [Fatal]
  - Agitation [Fatal]
  - Blood pressure increased [Fatal]
  - Depressed level of consciousness [Fatal]
  - Cerebral disorder [Fatal]
  - Acute disseminated encephalomyelitis [Fatal]
